FAERS Safety Report 15363275 (Version 3)
Quarter: 2019Q1

REPORT INFORMATION
  Report Type: Spontaneous
  Country: US (occurrence: US)
  Receive Date: 20180907
  Receipt Date: 20190304
  Transmission Date: 20190417
  Serious: Yes (Other)
  Sender: FDA-Public Use
  Company Number: US-PFIZER INC-2018362026

PATIENT
  Age: 54 Year
  Sex: Male

DRUGS (2)
  1. VIAGRA [Suspect]
     Active Substance: SILDENAFIL CITRATE
     Indication: TESTICULAR DISORDER
     Dosage: 100 MG, UNK (USE ONE HOUR BEFORE INTENDED RELATIONS)
  2. VIAGRA [Suspect]
     Active Substance: SILDENAFIL CITRATE
     Indication: HYPOGONADISM
     Dosage: 100 MG, UNK (HALF OR 1 ONCE EVERY OTHER 2DAYS)

REACTIONS (4)
  - Parkinson^s disease [Unknown]
  - Product use in unapproved indication [Unknown]
  - Micturition urgency [Unknown]
  - Withdrawal syndrome [Unknown]
